FAERS Safety Report 10527157 (Version 1)
Quarter: 2014Q4

REPORT INFORMATION
  Report Type: Spontaneous
  Country: US (occurrence: None)
  Receive Date: 20141016
  Receipt Date: 20141016
  Transmission Date: 20150528
  Serious: Yes (Other)
  Sender: FDA-Public Use
  Company Number: None

PATIENT
  Age: 11 Year
  Sex: Male
  Weight: 33.57 kg

DRUGS (7)
  1. RISPERIDONE. [Suspect]
     Active Substance: RISPERIDONE
     Indication: ATTENTION DEFICIT/HYPERACTIVITY DISORDER
     Dosage: 0.25?9 PILLS?ONCE DAILY IN AM?BY MOUTH
     Route: 048
     Dates: start: 20141005, end: 20141013
  2. DAVTRANA [Concomitant]
  3. TENER [Concomitant]
  4. MIMLAX [Concomitant]
  5. INTUNIV [Concomitant]
     Active Substance: GUANFACINE HYDROCHLORIDE
  6. FECALINA [Concomitant]
  7. RISPERIDONE. [Suspect]
     Active Substance: RISPERIDONE
     Dosage: 0.25?9 PILLS?ONCE DAILY IN AM?BY MOUTH
     Route: 048
     Dates: start: 20141005, end: 20141013

REACTIONS (2)
  - Drug ineffective [None]
  - Product quality issue [None]

NARRATIVE: CASE EVENT DATE: 201510
